FAERS Safety Report 10177610 (Version 1)
Quarter: 2014Q2

REPORT INFORMATION
  Report Type: Spontaneous
  Country: US (occurrence: US)
  Receive Date: 20140516
  Receipt Date: 20140516
  Transmission Date: 20141212
  Serious: Yes (Hospitalization, Other)
  Sender: FDA-Public Use
  Company Number: US-ELI_LILLY_AND_COMPANY-US201405001296

PATIENT
  Sex: Male

DRUGS (7)
  1. HUMULIN 30% REGULAR, 70% NPH [Suspect]
     Indication: TYPE 2 DIABETES MELLITUS
     Dosage: 30 U, UNK
     Route: 065
     Dates: start: 2005, end: 20140422
  2. HUMALOG 25% LISPRO, 75% NPL [Suspect]
     Indication: TYPE 2 DIABETES MELLITUS
     Dosage: UNK
     Route: 065
     Dates: start: 20140422
  3. ASPIRIN [Concomitant]
     Dosage: 81 MG, QD
  4. METOPROLOL [Concomitant]
     Dosage: 25 MG, BID
  5. LIPITOR [Concomitant]
     Dosage: 20 MG, QD
  6. PLAVIX [Concomitant]
     Dosage: 75 MG, QD
  7. METFORMIN [Concomitant]
     Dosage: 1000 MG, BID

REACTIONS (3)
  - Coronary artery occlusion [Unknown]
  - Cough [Unknown]
  - Wrong drug administered [Unknown]
